FAERS Safety Report 6649881-1 (Version None)
Quarter: 2010Q1

REPORT INFORMATION
  Report Type: 
  Country: None (occurrence: None)
  Receive Date: 20100325
  Receipt Date: 20100316
  Transmission Date: 20100710
  Serious: Yes (Hospitalization)
  Sender: FDA-Public Use
  Company Number: US-BIOGENIDEC-2010BI007608

PATIENT
  Age: 48 Year
  Sex: Female
  Weight: 61 kg

DRUGS (9)
  1. AVONEX [Suspect]
     Indication: MULTIPLE SCLEROSIS
     Route: 030
     Dates: start: 20000101, end: 20040601
  2. PROVIGIL [Concomitant]
     Indication: DEPRESSED LEVEL OF CONSCIOUSNESS
  3. ATENOLOL [Concomitant]
     Indication: HYPERTENSION
  4. DIOVAN [Concomitant]
     Indication: HYPERTENSION
  5. IRON SUPPLEMENT [Concomitant]
     Indication: ANAEMIA
  6. ZOLOFT [Concomitant]
     Indication: DEPRESSION
     Dates: start: 20000101
  7. NEURONTIN [Concomitant]
     Indication: NYSTAGMUS
  8. CRESTOR [Concomitant]
     Indication: BLOOD CHOLESTEROL INCREASED
  9. SYNTHROID [Concomitant]
     Indication: HYPOTHYROIDISM

REACTIONS (4)
  - ABASIA [None]
  - APHASIA [None]
  - HEMIPLEGIA [None]
  - MENINGIOMA [None]
